FAERS Safety Report 18593823 (Version 1)
Quarter: 2020Q4

REPORT INFORMATION
  Report Type: Report from Study
  Country: CA (occurrence: CA)
  Receive Date: 20201209
  Receipt Date: 20201209
  Transmission Date: 20210114
  Serious: Yes (Hospitalization, Other)
  Sender: FDA-Public Use
  Company Number: CA-JNJFOC-20190729395

PATIENT
  Age: 21 Year
  Sex: Female
  Weight: 65 kg

DRUGS (1)
  1. REMICADE [Suspect]
     Active Substance: INFLIXIMAB
     Indication: COLITIS ULCERATIVE
     Route: 042
     Dates: start: 20170727

REACTIONS (21)
  - Depressed level of consciousness [Recovering/Resolving]
  - Chills [Unknown]
  - Vomiting [Not Recovered/Not Resolved]
  - Seizure [Unknown]
  - Haemorrhage [Not Recovered/Not Resolved]
  - Infusion related reaction [Recovering/Resolving]
  - Respiratory rate increased [Not Recovered/Not Resolved]
  - Paraesthesia [Not Recovered/Not Resolved]
  - Anxiety [Unknown]
  - Premature separation of placenta [Unknown]
  - Chest discomfort [Not Recovered/Not Resolved]
  - Flushing [Recovering/Resolving]
  - Fatigue [Unknown]
  - Abdominal distension [Not Recovered/Not Resolved]
  - Exposure during pregnancy [Recovered/Resolved]
  - Haematochezia [Unknown]
  - Dyspnoea [Recovering/Resolving]
  - Retching [Not Recovered/Not Resolved]
  - Hypoaesthesia [Unknown]
  - Diarrhoea [Not Recovered/Not Resolved]
  - Mental disorder [Unknown]

NARRATIVE: CASE EVENT DATE: 20190702
